FAERS Safety Report 8607740-9 (Version None)
Quarter: 2012Q3

REPORT INFORMATION
  Report Type: 
  Country: None (occurrence: None)
  Receive Date: 20120821
  Receipt Date: 20120810
  Transmission Date: 20120928
  Serious: No
  Sender: FDA-Public Use
  Company Number: PHEH2012US011354

PATIENT
  Sex: Female

DRUGS (1)
  1. TASIGNA [Suspect]
     Indication: CHRONIC MYELOID LEUKAEMIA
     Dosage: 300 MG, BID
     Route: 048
     Dates: start: 20120530

REACTIONS (9)
  - NAUSEA [None]
  - PRURITUS [None]
  - ABDOMINAL PAIN UPPER [None]
  - HEADACHE [None]
  - ABDOMINAL DISTENSION [None]
  - ALOPECIA [None]
  - VOMITING [None]
  - PAIN [None]
  - DYSPEPSIA [None]
